FAERS Safety Report 9256832 (Version 2)
Quarter: 2013Q2

REPORT INFORMATION
  Report Type: Spontaneous
  Country: US (occurrence: None)
  Receive Date: 20130423
  Receipt Date: 20130516
  Transmission Date: 20140414
  Serious: Yes (Hospitalization)
  Sender: FDA-Public Use
  Company Number: 130111

PATIENT
  Age: 76 Year
  Sex: Male
  Weight: 77.11 kg

DRUGS (7)
  1. GOLYTELY [Suspect]
     Indication: COLONOSCOPY
     Route: 048
     Dates: start: 201010
  2. METOPROLOL [Concomitant]
  3. AMLODIPINE [Suspect]
  4. CANDESARAN [Concomitant]
  5. METFORMIN [Concomitant]
  6. ACETYLSALICYCLIC ACID [Concomitant]
  7. LOVASTATIN [Concomitant]

REACTIONS (9)
  - Fatigue [None]
  - Somnolence [None]
  - Myalgia [None]
  - Decreased appetite [None]
  - Constipation [None]
  - Renal failure [None]
  - Metabolic acidosis [None]
  - Blood lactate dehydrogenase increased [None]
  - Haemodialysis [None]
